FAERS Safety Report 9030447 (Version 2)
Quarter: 2014Q1

REPORT INFORMATION
  Report Type: Report from Study
  Country: CA (occurrence: CA)
  Receive Date: 20130122
  Receipt Date: 20140219
  Transmission Date: 20141002
  Serious: Yes (Hospitalization)
  Sender: FDA-Public Use
  Company Number: CA-ROCHE-1109706

PATIENT
  Age: 18 Year
  Sex: Female
  Weight: 80 kg

DRUGS (4)
  1. ACTEMRA [Suspect]
     Indication: JUVENILE IDIOPATHIC ARTHRITIS
     Route: 042
     Dates: start: 20120315
  2. ACTEMRA [Suspect]
     Indication: JUVENILE IDIOPATHIC ARTHRITIS
     Route: 042
     Dates: start: 20121129
  3. TYLENOL ARTHRITIS [Suspect]
     Indication: PRODUCT USED FOR UNKNOWN INDICATION
     Route: 065
  4. PREDNISONE [Concomitant]
     Route: 065
     Dates: end: 201301

REACTIONS (4)
  - Vomiting [Recovered/Resolved]
  - Exposure to toxic agent [Unknown]
  - Weight increased [Not Recovered/Not Resolved]
  - Stab wound [Recovered/Resolved]
